FAERS Safety Report 6756325-8 (Version None)
Quarter: 2010Q2

REPORT INFORMATION
  Report Type: 
  Country: None (occurrence: None)
  Receive Date: 20100604
  Receipt Date: 20100525
  Transmission Date: 20101027
  Serious: Yes (Life-Threatening, Hospitalization)
  Sender: FDA-Public Use
  Company Number: JP-JNJFOC-20100510501

PATIENT
  Sex: Female
  Weight: 50 kg

DRUGS (10)
  1. REMICADE [Suspect]
     Indication: RHEUMATOID ARTHRITIS
     Route: 042
  2. RHEUMATREX [Suspect]
     Indication: RHEUMATOID ARTHRITIS
     Route: 048
  3. OLMETEC [Concomitant]
     Route: 048
  4. ARTIST [Concomitant]
     Route: 048
  5. AMLODIN [Concomitant]
     Route: 048
  6. PLETAL [Concomitant]
     Route: 048
  7. FERROMIA [Concomitant]
     Route: 048
  8. CELECOX [Concomitant]
     Route: 048
  9. BONALON [Concomitant]
  10. MUCOSTA [Concomitant]
     Route: 048

REACTIONS (5)
  - BACK PAIN [None]
  - DISSEMINATED INTRAVASCULAR COAGULATION [None]
  - SEPSIS [None]
  - SHOCK [None]
  - URINARY TRACT INFECTION [None]
